FAERS Safety Report 13676628 (Version 4)
Quarter: 2017Q3

REPORT INFORMATION
  Report Type: Report from Study
  Country: CA (occurrence: CA)
  Receive Date: 20170622
  Receipt Date: 20170828
  Transmission Date: 20171127
  Serious: Yes (Other)
  Sender: FDA-Public Use
  Company Number: CA-BIOGEN-2017BI00421161

PATIENT
  Age: 17 Year
  Sex: Male

DRUGS (2)
  1. PLEGRIDY [Suspect]
     Active Substance: PEGINTERFERON BETA-1A
     Indication: RELAPSING-REMITTING MULTIPLE SCLEROSIS
     Route: 058
     Dates: start: 20170610, end: 20170610
  2. PLEGRIDY [Suspect]
     Active Substance: PEGINTERFERON BETA-1A
     Route: 065
     Dates: end: 20170612

REACTIONS (8)
  - Gait inability [Unknown]
  - Pain [Unknown]
  - Lymphocyte count decreased [Unknown]
  - Heart rate increased [Unknown]
  - Influenza like illness [Not Recovered/Not Resolved]
  - Dysstasia [Unknown]
  - Haematemesis [Recovered/Resolved]
  - Abdominal pain upper [Unknown]

NARRATIVE: CASE EVENT DATE: 20170610
